FAERS Safety Report 5978145-4 (Version None)
Quarter: 2008Q4

REPORT INFORMATION
  Report Type: 
  Country: None (occurrence: None)
  Receive Date: 20081126
  Receipt Date: 20081115
  Transmission Date: 20090506
  Serious: Yes (Other)
  Sender: FDA-Public Use
  Company Number: 2008SP023332

PATIENT
  Age: 58 Year
  Sex: Female

DRUGS (3)
  1. RIBAVIRIN [Suspect]
     Indication: HEPATITIS C
     Dosage: ;PO
     Route: 048
  2. PEGASYS [Suspect]
     Indication: HEPATITIS C
     Dosage: ;SC
     Route: 058
  3. HUMALOG [Concomitant]

REACTIONS (3)
  - EAR INFECTION [None]
  - TUBERCULOSIS TEST POSITIVE [None]
  - TYMPANIC MEMBRANE PERFORATION [None]
